FAERS Safety Report 4825941-2 (Version None)
Quarter: 2005Q4

REPORT INFORMATION
  Report Type: 
  Country: None (occurrence: None)
  Receive Date: 20051110
  Receipt Date: 20051110
  Transmission Date: 20060501
  Serious: Yes (Hospitalization)
  Sender: FDA-Public Use
  Company Number: None

PATIENT
  Age: 67 Year
  Sex: Male
  Weight: 92 kg

DRUGS (2)
  1. SIMVASTATIN [Suspect]
     Indication: HYPERLIPIDAEMIA
     Dosage: 80MG   QHS   PO
     Route: 048
     Dates: start: 20050623, end: 20050721
  2. GEMFIBROZIL [Suspect]
     Indication: HYPERLIPIDAEMIA
     Dosage: 600MG  BID   PO
     Route: 048
     Dates: start: 20050322, end: 20050721

REACTIONS (1)
  - RHABDOMYOLYSIS [None]
